FAERS Safety Report 8488109-7 (Version None)
Quarter: 2012Q3

REPORT INFORMATION
  Report Type: 
  Country: None (occurrence: None)
  Receive Date: 20120705
  Receipt Date: 20120702
  Transmission Date: 20120928
  Serious: Yes (Hospitalization)
  Sender: FDA-Public Use
  Company Number: PHHY2012FR056854

PATIENT
  Sex: Male

DRUGS (5)
  1. TEGRETOL [Suspect]
     Dosage: 200 MG, BID
     Route: 048
     Dates: end: 20120613
  2. KARDEGIC [Concomitant]
     Dates: start: 20120325
  3. NEXIUM [Concomitant]
     Dates: start: 20120325
  4. INDAPAMIDE [Interacting]
     Indication: HYPERTENSION
     Dosage: 1.5 MG/DAY
     Dates: start: 20120325, end: 20120613
  5. CRESTOR [Concomitant]
     Dates: start: 20120325

REACTIONS (3)
  - HYPOKALAEMIA [None]
  - DRUG INTERACTION [None]
  - HYPONATRAEMIA [None]
